FAERS Safety Report 17771100 (Version 1)
Quarter: 2020Q2

REPORT INFORMATION
  Report Type: Spontaneous
  Country: US (occurrence: US)
  Receive Date: 20200512
  Receipt Date: 20200512
  Transmission Date: 20200714
  Serious: Yes (Hospitalization)
  Sender: FDA-Public Use
  Company Number: None

PATIENT
  Age: 72 Year
  Sex: Female

DRUGS (10)
  1. DOXYCYCL HYC [Concomitant]
  2. PREDNISONE. [Concomitant]
     Active Substance: PREDNISONE
  3. AMOXICILLIN. [Concomitant]
     Active Substance: AMOXICILLIN
  4. MUCINEX [Concomitant]
     Active Substance: GUAIFENESIN
  5. ENBREL [Suspect]
     Active Substance: ETANERCEPT
     Indication: RHEUMATOID ARTHRITIS
     Dosage: ?          OTHER FREQUENCY:WEEKLY;?
     Route: 058
     Dates: start: 20180203
  6. ALBUTEROL. [Concomitant]
     Active Substance: ALBUTEROL
  7. SENNA [Concomitant]
     Active Substance: SENNA LEAF\SENNOSIDES\SENNOSIDES A AND B
  8. PROMETHAZINE [Concomitant]
     Active Substance: PROMETHAZINE HYDROCHLORIDE
  9. BENZONATATE. [Concomitant]
     Active Substance: BENZONATATE
  10. FLUTICASONE. [Concomitant]
     Active Substance: FLUTICASONE

REACTIONS (2)
  - Pneumonia [None]
  - Rheumatoid arthritis [None]
